FAERS Safety Report 7098765-6 (Version None)
Quarter: 2010Q4

REPORT INFORMATION
  Report Type: 
  Country: None (occurrence: None)
  Receive Date: 20101112
  Receipt Date: 20080527
  Transmission Date: 20110411
  Serious: No
  Sender: FDA-Public Use
  Company Number: US-KINGPHARMUSA00001-K200800613

PATIENT
  Age: 27 Year
  Sex: Female

DRUGS (1)
  1. SKELAXIN [Suspect]
     Indication: MUSCLE SPASTICITY
     Dosage: 800 MG, BID
     Route: 048
     Dates: start: 20080101, end: 20080101

REACTIONS (11)
  - DISTURBANCE IN ATTENTION [None]
  - DIZZINESS [None]
  - ERYTHEMA [None]
  - FATIGUE [None]
  - FEELING OF BODY TEMPERATURE CHANGE [None]
  - HEADACHE [None]
  - INFLUENZA LIKE ILLNESS [None]
  - OCULAR HYPERAEMIA [None]
  - PAIN [None]
  - SOMNOLENCE [None]
  - VOMITING [None]
